FAERS Safety Report 7398809-8 (Version None)
Quarter: 2011Q2

REPORT INFORMATION
  Report Type: 
  Country: None (occurrence: None)
  Receive Date: 20110404
  Receipt Date: 20110404
  Transmission Date: 20111010
  Serious: No
  Sender: FDA-Public Use
  Company Number: None

PATIENT

DRUGS (2)
  1. CISPLATIN [Suspect]
     Dosage: 150 MG
     Dates: end: 20110318
  2. TAXOTERE [Suspect]
     Dosage: 150 MG
     Dates: end: 20110318

REACTIONS (1)
  - WHITE BLOOD CELL COUNT DECREASED [None]
